FAERS Safety Report 9966286 (Version 1)
Quarter: 2014Q1

REPORT INFORMATION
  Report Type: Report from Study
  Country: US (occurrence: US)
  Receive Date: 20140305
  Receipt Date: 20140305
  Transmission Date: 20141002
  Serious: No
  Sender: FDA-Public Use
  Company Number: US-ABBVIE-13P-163-1122954-00

PATIENT
  Age: 55 Year
  Sex: Female

DRUGS (8)
  1. HUMIRA [Suspect]
     Indication: ANKYLOSING SPONDYLITIS
     Dates: start: 20130626
  2. ATENOLOL [Concomitant]
     Indication: HYPERTENSION
  3. TRAMADOL [Concomitant]
     Indication: PAIN
     Dosage: 2 EVERY AM AND 1-2 EVERY PM
  4. TIZANIDINE [Concomitant]
     Indication: MUSCLE SPASMS
     Dosage: AT BEDTIME
  5. OXYBUTYNIN [Concomitant]
     Indication: BLADDER DISORDER
  6. NORTRIPTYLINE [Concomitant]
     Indication: NEURALGIA
  7. ALLOPURINOL [Concomitant]
     Indication: BLOOD URIC ACID INCREASED
  8. SULFASALAZINE [Concomitant]
     Indication: ANKYLOSING SPONDYLITIS

REACTIONS (2)
  - Injection site rash [Recovered/Resolved]
  - Rash [Recovered/Resolved]
